APPROVED DRUG PRODUCT: BUTALBITAL AND ACETAMINOPHEN
Active Ingredient: ACETAMINOPHEN; BUTALBITAL
Strength: 300MG;50MG
Dosage Form/Route: TABLET;ORAL
Application: A214088 | Product #001 | TE Code: AA
Applicant: SENORES PHARMACEUTICALS INC
Approved: Apr 7, 2022 | RLD: No | RS: No | Type: RX